FAERS Safety Report 4659384-1 (Version None)
Quarter: 2005Q2

REPORT INFORMATION
  Report Type: 
  Country: None (occurrence: None)
  Receive Date: 20050510
  Receipt Date: 20050503
  Transmission Date: 20051028
  Serious: Yes (Hospitalization)
  Sender: FDA-Public Use
  Company Number: 2005AL001668

PATIENT
  Age: 92 Year
  Sex: Female

DRUGS (6)
  1. SERAX [Suspect]
     Indication: PSYCHOMOTOR AGITATION
     Dosage: PO
     Route: 048
     Dates: start: 20050401, end: 20050401
  2. SERAX [Suspect]
     Indication: SEDATION
     Dosage: PO
     Route: 048
     Dates: start: 20050401, end: 20050401
  3. HALOPERIDOL [Suspect]
     Indication: PSYCHOMOTOR AGITATION
     Dates: start: 20050401, end: 20050401
  4. HALOPERIDOL [Suspect]
     Indication: SEDATION
     Dates: start: 20050401, end: 20050401
  5. LEXOTANIL [Suspect]
     Indication: PSYCHOMOTOR AGITATION
     Dates: start: 20050401, end: 20050401
  6. LEXOTANIL [Suspect]
     Indication: SEDATION
     Dates: start: 20050401, end: 20050401

REACTIONS (5)
  - ACCIDENTAL OVERDOSE [None]
  - BLOOD PRESSURE INCREASED [None]
  - FALL [None]
  - HEART RATE INCREASED [None]
  - MEDICATION ERROR [None]
